FAERS Safety Report 25772227 (Version 2)
Quarter: 2025Q3

REPORT INFORMATION
  Report Type: Spontaneous
  Country: US (occurrence: US)
  Receive Date: 20250908
  Receipt Date: 20250922
  Transmission Date: 20251021
  Serious: No
  Sender: SANOFI AVENTIS
  Company Number: US-SA-2025SA264100

PATIENT
  Sex: Female
  Weight: 88.27 kg

DRUGS (2)
  1. DUPIXENT [Suspect]
     Active Substance: DUPILUMAB
     Indication: Illness
     Dosage: 300 MG, QOW
     Route: 058
  2. DUPIXENT [Suspect]
     Active Substance: DUPILUMAB
     Dosage: 300 MG, QW
     Route: 058

REACTIONS (5)
  - Symptom recurrence [Unknown]
  - Therapeutic response shortened [Unknown]
  - Illness [Unknown]
  - Product dose omission issue [Unknown]
  - Off label use [Unknown]
